FAERS Safety Report 4784385-2 (Version None)
Quarter: 2005Q3

REPORT INFORMATION
  Report Type: 
  Country: None (occurrence: None)
  Receive Date: 20050929
  Receipt Date: 20050929
  Transmission Date: 20060218
  Serious: Yes (Hospitalization)
  Sender: FDA-Public Use
  Company Number: None

PATIENT
  Age: 86 Year
  Sex: Female
  Weight: 50.9 kg

DRUGS (6)
  1. RITUXAN [Suspect]
     Dosage: 500 MG ONE TIME IV
     Route: 042
     Dates: start: 20050927, end: 20050927
  2. ADVAIR DISKUS 100/50 [Concomitant]
  3. TOPROL-XL [Concomitant]
  4. SYNTHROID [Concomitant]
  5. CARDIZEM [Concomitant]
  6. MUCIONEX [Concomitant]

REACTIONS (4)
  - ANAPHYLACTIC REACTION [None]
  - BLOOD PRESSURE INCREASED [None]
  - BODY TEMPERATURE INCREASED [None]
  - RESPIRATORY DISTRESS [None]
